FAERS Safety Report 11375323 (Version 4)
Quarter: 2016Q1

REPORT INFORMATION
  Report Type: Report from Study
  Country: DK (occurrence: DK)
  Receive Date: 20150813
  Receipt Date: 20160210
  Transmission Date: 20160525
  Serious: Yes (Other)
  Sender: FDA-Public Use
  Company Number: DK-ROCHE-1620871

PATIENT

DRUGS (5)
  1. FILGRASTIM [Concomitant]
     Active Substance: FILGRASTIM
     Route: 065
  2. BENDAMUSTINE [Suspect]
     Active Substance: BENDAMUSTINE
     Indication: NON-HODGKIN^S LYMPHOMA
     Dosage: DAY 1
     Route: 042
  3. RITUXIMAB [Suspect]
     Active Substance: RITUXIMAB
     Indication: NON-HODGKIN^S LYMPHOMA
     Dosage: DAY 1
     Route: 042
  4. PIXANTRONE [Suspect]
     Active Substance: PIXANTRONE
     Indication: NON-HODGKIN^S LYMPHOMA
     Dosage: ON DAY 1 AND DAY 8 GIVEN AT 3-WEEKLY INTERVALS FOR A MAXIMUM OF 6 CYCLES.
     Route: 042
  5. ETOPOSIDE. [Suspect]
     Active Substance: ETOPOSIDE
     Indication: NON-HODGKIN^S LYMPHOMA
     Dosage: DAY 1
     Route: 042

REACTIONS (2)
  - Haematotoxicity [Unknown]
  - Infection [Recovered/Resolved]
